FAERS Safety Report 8370293-7 (Version None)
Quarter: 2012Q2

REPORT INFORMATION
  Report Type: 
  Country: None (occurrence: None)
  Receive Date: 20120518
  Receipt Date: 20111114
  Transmission Date: 20120825
  Serious: No
  Sender: FDA-Public Use
  Company Number: US-ASTRAZENECA-2011SE73743

PATIENT
  Sex: Female

DRUGS (3)
  1. PRILOSEC OTC [Suspect]
     Route: 048
     Dates: start: 20110930, end: 20111031
  2. HORMONES AND RELATED AGENTS [Concomitant]
     Dosage: UNKNOWN
  3. VALERIAN ROOT /01561603/ [Concomitant]
     Dosage: UNKNOWN

REACTIONS (3)
  - POOR QUALITY SLEEP [None]
  - INSOMNIA [None]
  - HEART RATE INCREASED [None]
